FAERS Safety Report 23343163 (Version 1)
Quarter: 2023Q4

REPORT INFORMATION
  Report Type: Spontaneous
  Country: PT (occurrence: PT)
  Receive Date: 20231227
  Receipt Date: 20231227
  Transmission Date: 20240109
  Serious: Yes (Other)
  Sender: FDA-Public Use
  Company Number: PT-BAXTER-2023BAX038791

PATIENT
  Age: 59 Year
  Sex: Female

DRUGS (20)
  1. EXTRANEAL [Suspect]
     Active Substance: CALCIUM CHLORIDE\ICODEXTRIN\MAGNESIUM CHLORIDE\SODIUM CHLORIDE\SODIUM LACTATE
     Indication: Peritoneal dialysis
     Dosage: 1200 ML
     Route: 033
  2. CALCIUM CL\DEXTROSE\MAGNESIUM CL\SODIUM BICAR\SODIUM CL\SODIUM LACT [Suspect]
     Active Substance: CALCIUM CHLORIDE\DEXTROSE MONOHYDRATE\MAGNESIUM CHLORIDE\SODIUM BICARBONATE\SODIUM CHLORIDE\SODIUM L
     Indication: Peritoneal dialysis
     Dosage: BAG OF 2500 ML
     Route: 033
  3. NUTRINEAL PD4 [Suspect]
     Active Substance: AMINO ACIDS\CALCIUM CHLORIDE\MAGNESIUM CHLORIDE\SODIUM CHLORIDE\SODIUM LACTATE
     Indication: Peritoneal dialysis
     Dosage: BAG OF 2500 ML
     Route: 033
  4. PANTOPRAZOLE [Concomitant]
     Active Substance: PANTOPRAZOLE
     Dosage: 40 (UNIT NOT REPORTED) 1 TABLET FAST
     Route: 065
  5. LINAGLIPTIN [Concomitant]
     Active Substance: LINAGLIPTIN
     Dosage: 5 MG, 1 TABLET ALTERNATE DAYS
     Route: 065
  6. CARVEDILOL [Concomitant]
     Active Substance: CARVEDILOL
     Dosage: 25 MG, 2 (DETAILS NOT REPORTED) PER DAY
     Route: 065
  7. LOSARTAN [Concomitant]
     Active Substance: LOSARTAN
     Dosage: 100 MG AT NIGHT
     Route: 065
  8. VELTASSA [Concomitant]
     Active Substance: PATIROMER
     Dosage: 8.4 GRAMS PER DAY
     Route: 065
  9. SEVELAMER [Concomitant]
     Active Substance: SEVELAMER
     Dosage: 800 MG, 1 (DETAILS NOT REPORTED) + 2 (DETAILS NOT REPORTED) + 2 (DETAILS NOT REPORTED)
     Route: 065
  10. PARICALCITOL [Concomitant]
     Active Substance: PARICALCITOL
     Dosage: 2 MICROGRAMS, MONDAY, WEDNESDAY AND FRIDAY
     Route: 065
  11. CHOLECALCIFEROL [Concomitant]
     Active Substance: CHOLECALCIFEROL
     Dosage: 4 DROPS PER DAY
     Route: 065
  12. ERYTHROPOIETIN [Concomitant]
     Active Substance: ERYTHROPOIETIN
     Dosage: 10000 UNITS, WEDNESDAY
     Route: 065
  13. LEVOTHYROXINE [Concomitant]
     Active Substance: LEVOTHYROXINE
     Dosage: 0.025 MG PER DAY, AC
     Route: 065
  14. FOLIC ACID [Concomitant]
     Active Substance: FOLIC ACID
     Dosage: 5 MG PER DAY
     Route: 065
  15. ATORVASTATIN [Concomitant]
     Active Substance: ATORVASTATIN
     Dosage: 20 MG, 1 TABLET ALTERNATE DAYS
     Route: 065
  16. PENTOXYFYLLIN [Concomitant]
     Dosage: 400 MG, 2 TABLETS PER DAY
     Route: 065
  17. MIRTAZAPINE [Concomitant]
     Active Substance: MIRTAZAPINE
     Dosage: 30 MG, 1 TABLET PER NIGHT, SOS
     Route: 065
  18. FLUTICASONE FUROATE\VILANTEROL TRIFENATATE [Concomitant]
     Active Substance: FLUTICASONE FUROATE\VILANTEROL TRIFENATATE
     Dosage: 92/92
     Route: 065
  19. Aeromax [Concomitant]
     Route: 065
  20. RINIALER [Concomitant]
     Route: 065

REACTIONS (3)
  - Peritonitis [Recovering/Resolving]
  - Peritoneal cloudy effluent [Recovered/Resolved]
  - Peritoneal dialysis complication [Unknown]

NARRATIVE: CASE EVENT DATE: 20231215
